FAERS Safety Report 16077315 (Version 2)
Quarter: 2019Q1

REPORT INFORMATION
  Report Type: Report from Study
  Country: US (occurrence: US)
  Receive Date: 20190315
  Receipt Date: 20190325
  Transmission Date: 20190418
  Serious: Yes (Other)
  Sender: FDA-Public Use
  Company Number: US-TEVA-2019-US-1018084

PATIENT
  Age: 59 Year
  Sex: Female

DRUGS (2)
  1. AUSTEDO [Suspect]
     Active Substance: DEUTETRABENAZINE
     Indication: TARDIVE DYSKINESIA
     Dosage: TITRATING
     Route: 065
     Dates: start: 20190220
  2. AUSTEDO [Suspect]
     Active Substance: DEUTETRABENAZINE
     Dosage: 12 MILLIGRAM DAILY; CURRENTLY
     Route: 065

REACTIONS (11)
  - Feeling abnormal [Unknown]
  - Claustrophobia [Unknown]
  - General physical health deterioration [Unknown]
  - Depressed mood [Unknown]
  - Confusional state [Unknown]
  - Panic disorder [Unknown]
  - Hallucination, auditory [Unknown]
  - Speech sound disorder [Unknown]
  - Psychomotor hyperactivity [Unknown]
  - Dyskinesia [Unknown]
  - Memory impairment [Unknown]

NARRATIVE: CASE EVENT DATE: 201902
